FAERS Safety Report 8379437-4 (Version None)
Quarter: 2012Q2

REPORT INFORMATION
  Report Type: 
  Country: None (occurrence: None)
  Receive Date: 20120523
  Receipt Date: 20120516
  Transmission Date: 20120825
  Serious: Yes (Death, Other)
  Sender: FDA-Public Use
  Company Number: US-BRISTOL-MYERS SQUIBB COMPANY-16369175

PATIENT
  Age: 65 Year
  Sex: Female

DRUGS (17)
  1. MAGNESIUM HYDROXIDE TAB [Concomitant]
  2. VITAMIN D [Concomitant]
     Dates: start: 20111201
  3. COLCHICINE [Concomitant]
  4. ZETIA [Concomitant]
  5. DENOSUMAB [Concomitant]
     Dosage: PROLIA
  6. ASPIRIN [Concomitant]
  7. FUROSEMIDE [Concomitant]
  8. NITROGLYCERIN [Concomitant]
  9. ORENCIA [Suspect]
     Indication: RHEUMATOID ARTHRITIS
     Dosage: NO OF INFUSIONS 1
     Route: 042
     Dates: start: 20120118
  10. CALCIUM + VITAMIN D [Concomitant]
  11. CRESTOR [Concomitant]
  12. FOLIC ACID [Concomitant]
  13. TRAMADOL HYDROCHLORIDE [Concomitant]
  14. ISOSORBIDE DINITRATE [Concomitant]
  15. NITROLINGUAL [Concomitant]
     Dosage: IF NEEDED. NITROSUBLINGUAL
  16. OMEPRAZOLE [Concomitant]
  17. SPIRONOLACTONE [Concomitant]

REACTIONS (3)
  - MYOCARDIAL INFARCTION [None]
  - ABDOMINAL DISCOMFORT [None]
  - ROAD TRAFFIC ACCIDENT [None]
